FAERS Safety Report 23560864 (Version 2)
Quarter: 2024Q2

REPORT INFORMATION
  Report Type: Spontaneous
  Country: US (occurrence: US)
  Receive Date: 20240223
  Receipt Date: 20240416
  Transmission Date: 20240716
  Serious: Yes (Death)
  Sender: FDA-Public Use
  Company Number: US-BEH-2024169062

PATIENT
  Age: 58 Year
  Sex: Male

DRUGS (1)
  1. HIZENTRA [Suspect]
     Active Substance: HUMAN IMMUNOGLOBULIN G
     Indication: Chronic inflammatory demyelinating polyradiculoneuropathy
     Dosage: 30 GRAM, QOW(EVERY 2 WEEKS)
     Route: 058
     Dates: start: 202202

REACTIONS (2)
  - Septic shock [Fatal]
  - End stage renal disease [Fatal]

NARRATIVE: CASE EVENT DATE: 20240216
